FAERS Safety Report 10911618 (Version 2)
Quarter: 2015Q2

REPORT INFORMATION
  Report Type: Report from Study
  Country: US (occurrence: US)
  Receive Date: 20150313
  Receipt Date: 20150430
  Transmission Date: 20150821
  Serious: Yes (Death)
  Sender: FDA-Public Use
  Company Number: US-BIOGENIDEC-2015BI027572

PATIENT
  Age: 59 Year
  Sex: Female

DRUGS (10)
  1. TYSABRI [Suspect]
     Active Substance: NATALIZUMAB
     Indication: MULTIPLE SCLEROSIS
     Route: 042
     Dates: start: 20140228, end: 20140815
  2. FOSAMAX [Concomitant]
     Active Substance: ALENDRONATE SODIUM
  3. HIPREX [Concomitant]
     Active Substance: METHENAMINE HIPPURATE
  4. BACLOFEN PUMP [Concomitant]
  5. AMINOPYRIDINE [Concomitant]
     Active Substance: DALFAMPRIDINE
  6. AUBAGIO [Concomitant]
     Active Substance: TERIFLUNOMIDE
  7. HALCION [Concomitant]
     Active Substance: TRIAZOLAM
  8. ASCORBIC ACID. [Concomitant]
     Active Substance: ASCORBIC ACID
  9. TIZANIDINE (TIZANIDINE) [Concomitant]
     Active Substance: TIZANIDINE
  10. VITAMIN D3 [Concomitant]
     Active Substance: CHOLECALCIFEROL

REACTIONS (3)
  - Cerebrovascular accident [Fatal]
  - Myocardial infarction [Fatal]
  - Death [Fatal]

NARRATIVE: CASE EVENT DATE: 20150207
